FAERS Safety Report 12643839 (Version 1)
Quarter: 2016Q3

REPORT INFORMATION
  Report Type: Spontaneous
  Country: GB (occurrence: GB)
  Receive Date: 20160811
  Receipt Date: 20160811
  Transmission Date: 20161109
  Serious: Yes (Hospitalization)
  Sender: FDA-Public Use
  Company Number: GB-TEVA-682639ACC

PATIENT
  Age: 79 Year
  Sex: Male

DRUGS (16)
  1. ADCAL-D3 [Concomitant]
     Active Substance: CALCIUM CARBONATE\CHOLECALCIFEROL
  2. ASPIRIN. [Concomitant]
     Active Substance: ASPIRIN
     Dosage: 75 MILLIGRAM DAILY;
  3. SALAMOL [Concomitant]
     Active Substance: ALBUTEROL
     Dosage: 400 MICROGRAM DAILY;
     Route: 055
  4. ALENDRONIC ACID [Concomitant]
     Active Substance: ALENDRONIC ACID
  5. CARBOCISTEINE [Concomitant]
     Active Substance: CARBOCYSTEINE
     Dosage: 2250 MILLIGRAM DAILY;
  6. LANSOPRAZOLE. [Suspect]
     Active Substance: LANSOPRAZOLE
     Dosage: 15 MILLIGRAM DAILY;
     Dates: end: 20160622
  7. FOLIC ACID. [Concomitant]
     Active Substance: FOLIC ACID
     Dosage: 5 MILLIGRAM DAILY;
  8. SALBUTAMOL [Concomitant]
     Active Substance: ALBUTEROL
     Dosage: 2.5MG/2.5ML NEBULISER LIQUID UNIT DOSE VIALS
  9. CYANOCOBALAMIN. [Concomitant]
     Active Substance: CYANOCOBALAMIN
  10. FLUCLOXACILLIN [Concomitant]
     Active Substance: FLUCLOXACILLIN
     Dosage: 2000 MILLIGRAM DAILY;
     Dates: start: 20160609, end: 20160713
  11. VERAPAMIL [Concomitant]
     Active Substance: VERAPAMIL HYDROCHLORIDE
     Dosage: 120 MILLIGRAM DAILY;
     Dates: start: 20160608
  12. RANITIDINE. [Concomitant]
     Active Substance: RANITIDINE
     Dosage: 150 MILLIGRAM DAILY; IN THE MORNING
     Dates: start: 20160623
  13. TIOTROPIUM BROMIDE [Concomitant]
     Active Substance: TIOTROPIUM BROMIDE
     Dosage: 180 MICROGRAM DAILY; IN THE MORNING
     Route: 055
  14. ATORVASTATIN [Concomitant]
     Active Substance: ATORVASTATIN
     Dosage: 20 MILLIGRAM DAILY; AT NIGHT
  15. RAMIPRIL. [Concomitant]
     Active Substance: RAMIPRIL
     Dosage: 2.5 MILLIGRAM DAILY; AT NIGHT
     Dates: start: 20160608
  16. SYMBICORT [Concomitant]
     Active Substance: BUDESONIDE\FORMOTEROL FUMARATE DIHYDRATE
     Dosage: 2 DOSAGE FORMS DAILY; 400/12

REACTIONS (4)
  - Hyponatraemia [Recovered/Resolved]
  - Infective exacerbation of chronic obstructive airways disease [Unknown]
  - Productive cough [Unknown]
  - Dyspnoea [Unknown]

NARRATIVE: CASE EVENT DATE: 20160621
